FAERS Safety Report 6227641-3 (Version None)
Quarter: 2009Q2

REPORT INFORMATION
  Report Type: 
  Country: None (occurrence: None)
  Receive Date: 20090612
  Receipt Date: 20090603
  Transmission Date: 20091009
  Serious: Yes (Hospitalization)
  Sender: FDA-Public Use
  Company Number: PHHY2009JP13653

PATIENT
  Sex: Male
  Weight: 70 kg

DRUGS (5)
  1. ZOMETA [Suspect]
     Indication: METASTASES TO BONE
     Dosage: 4 MG, UNK
     Route: 042
     Dates: start: 20090331
  2. ZOMETA [Suspect]
     Indication: PROSTATE CANCER
  3. LEUPLIN [Concomitant]
     Dosage: UNK
     Route: 042
     Dates: start: 20081111
  4. CASODEX [Concomitant]
     Dosage: 1 DF, UNK
     Route: 048
     Dates: start: 20081111
  5. URIEF [Concomitant]
     Dosage: 16 MG, UNK
     Route: 048
     Dates: start: 20081024

REACTIONS (8)
  - CHILLS [None]
  - CONJUNCTIVITIS [None]
  - DIZZINESS [None]
  - EYELID OEDEMA [None]
  - FALL [None]
  - HEADACHE [None]
  - MUSCULOSKELETAL STIFFNESS [None]
  - NECK PAIN [None]
